FAERS Safety Report 8491526-2 (Version None)
Quarter: 2012Q2

REPORT INFORMATION
  Report Type: 
  Country: None (occurrence: None)
  Receive Date: 20120402
  Receipt Date: 20100225
  Transmission Date: 20120825
  Serious: Yes (Other)
  Sender: FDA-Public Use
  Company Number: PHEH2010US02741

PATIENT
  Sex: Male

DRUGS (1)
  1. EXFORGE [Suspect]

REACTIONS (3)
  - OEDEMA PERIPHERAL [None]
  - HEADACHE [None]
  - DYSPNOEA [None]
